FAERS Safety Report 6375825-6 (Version None)
Quarter: 2009Q3

REPORT INFORMATION
  Report Type: 
  Country: None (occurrence: None)
  Receive Date: 20090924
  Receipt Date: 20090914
  Transmission Date: 20100115
  Serious: Yes (Hospitalization)
  Sender: FDA-Public Use
  Company Number: DE-ELI_LILLY_AND_COMPANY-DE200908000790

PATIENT
  Age: 71 Year
  Sex: Male

DRUGS (12)
  1. BYETTA [Suspect]
     Dosage: UNK, UNKNOWN
     Route: 065
     Dates: start: 20090710
  2. PLAVIX [Concomitant]
  3. SIMVASTATIN [Concomitant]
  4. DIOVAN [Concomitant]
  5. ESIDRIX [Concomitant]
  6. METOPROLOL TARTRATE [Concomitant]
  7. AMLODIPIN                          /00972401/ [Concomitant]
  8. MOXONIDIN [Concomitant]
  9. AMARYL [Concomitant]
  10. TORSEMIDE [Concomitant]
  11. PANTOPRAZOLE SODIUM [Concomitant]
  12. ALLOPURINOL [Concomitant]

REACTIONS (3)
  - BODY TEMPERATURE INCREASED [None]
  - NAUSEA [None]
  - SHOCK [None]
